FAERS Safety Report 9777573 (Version 1)
Quarter: 2013Q4

REPORT INFORMATION
  Report Type: Spontaneous
  Country: FR (occurrence: FR)
  Receive Date: 20131222
  Receipt Date: 20131222
  Transmission Date: 20140711
  Serious: Yes (Hospitalization)
  Sender: FDA-Public Use
  Company Number: FR-ABBVIE-13P-056-1180374-00

PATIENT
  Sex: Female

DRUGS (1)
  1. ENANTONE LP [Suspect]
     Indication: ENDOMETRIOSIS
     Route: 065

REACTIONS (2)
  - Ovarian hyperstimulation syndrome [Unknown]
  - Oestradiol increased [Unknown]
